FAERS Safety Report 23869486 (Version 5)
Quarter: 2024Q3

REPORT INFORMATION
  Report Type: Report from Study
  Country: IN (occurrence: IN)
  Receive Date: 20240517
  Receipt Date: 20240715
  Transmission Date: 20241017
  Serious: Yes (Hospitalization, Other)
  Sender: ROCHE
  Company Number: IN-ROCHE-3562860

PATIENT
  Age: 44 Year
  Sex: Male

DRUGS (1)
  1. POLIVY [Suspect]
     Active Substance: POLATUZUMAB VEDOTIN-PIIQ
     Indication: B-cell lymphoma
     Route: 042
     Dates: start: 20240311

REACTIONS (4)
  - Disease progression [Unknown]
  - Therapy non-responder [Unknown]
  - Kidney infection [Unknown]
  - Nephropathy toxic [Unknown]
